FAERS Safety Report 24231630 (Version 3)
Quarter: 2024Q4

REPORT INFORMATION
  Report Type: Other
  Country: CA (occurrence: CA)
  Receive Date: 20240821
  Receipt Date: 20241111
  Transmission Date: 20250115
  Serious: Yes (Other)
  Sender: TOLMAR
  Company Number: CA-TOLMAR, INC.-24CA051328

PATIENT
  Sex: Male

DRUGS (8)
  1. ELIGARD [Suspect]
     Active Substance: LEUPROLIDE ACETATE
     Indication: Prostate cancer
     Dosage: 22.5 MILLIGRAM, Q 3 MONTH
     Route: 058
     Dates: start: 20240726
  2. ELIGARD [Suspect]
     Active Substance: LEUPROLIDE ACETATE
     Dosage: 22.5 MILLIGRAM, Q 3 MONTH
     Route: 058
     Dates: start: 20241019
  3. ELIGARD [Suspect]
     Active Substance: LEUPROLIDE ACETATE
     Indication: Prostate cancer
     Dosage: UNK
  4. RADIATION THERAPY [Concomitant]
     Active Substance: RADIATION THERAPY
     Indication: Product used for unknown indication
     Dosage: UNK
     Dates: start: 20241002
  5. RADIATION THERAPY [Concomitant]
     Active Substance: RADIATION THERAPY
     Dosage: UNK
     Dates: start: 20241004
  6. RADIATION THERAPY [Concomitant]
     Active Substance: RADIATION THERAPY
     Dosage: UNK
     Dates: start: 20241007
  7. RADIATION THERAPY [Concomitant]
     Active Substance: RADIATION THERAPY
     Dosage: UNK
     Dates: start: 20241009
  8. RADIATION THERAPY [Concomitant]
     Active Substance: RADIATION THERAPY
     Dosage: UNK
     Dates: start: 20241011

REACTIONS (10)
  - Pulmonary embolism [Recovering/Resolving]
  - Hypercoagulation [Unknown]
  - Syncope [Recovered/Resolved]
  - Somnolence [Not Recovered/Not Resolved]
  - Weight decreased [Unknown]
  - Urinary tract infection [Recovered/Resolved]
  - Injection site pain [Recovered/Resolved]
  - Injection site discomfort [Recovered/Resolved]
  - Hot flush [Recovered/Resolved]
  - Asthenia [Unknown]

NARRATIVE: CASE EVENT DATE: 20240101
